FAERS Safety Report 15489824 (Version 1)
Quarter: 2018Q4

REPORT INFORMATION
  Report Type: Spontaneous
  Country: AU (occurrence: AU)
  Receive Date: 20181011
  Receipt Date: 20181011
  Transmission Date: 20190205
  Serious: Yes (Hospitalization)
  Sender: FDA-Public Use
  Company Number: AU-LANNETT COMPANY, INC.-AU-2018LAN001193

PATIENT
  Age: 31 Year
  Sex: Male

DRUGS (4)
  1. CODEINE SULFATE. [Suspect]
     Active Substance: CODEINE SULFATE
     Dosage: 576 MG, QD
     Route: 065
  2. IBUPROFEN. [Suspect]
     Active Substance: IBUPROFEN
     Dosage: 9 G, QD
     Route: 065
  3. IBUPROFEN. [Suspect]
     Active Substance: IBUPROFEN
     Indication: PRODUCT USED FOR UNKNOWN INDICATION
     Dosage: 20 G, QD
     Route: 065
  4. CODEINE SULFATE. [Suspect]
     Active Substance: CODEINE SULFATE
     Indication: PRODUCT USED FOR UNKNOWN INDICATION
     Dosage: 1.3 G, QD
     Route: 065

REACTIONS (4)
  - Drug abuse [Recovered/Resolved]
  - Overdose [Recovered/Resolved]
  - Renal failure [Recovered/Resolved]
  - Nephropathy toxic [Recovered/Resolved]
